FAERS Safety Report 17683160 (Version 1)
Quarter: 2020Q2

REPORT INFORMATION
  Report Type: Spontaneous
  Country: IT (occurrence: IT)
  Receive Date: 20200420
  Receipt Date: 20200420
  Transmission Date: 20200714
  Serious: Yes (Disabling)
  Sender: FDA-Public Use
  Company Number: IT-TEVA-2020-IT-1225386

PATIENT
  Age: 61 Year
  Sex: Male
  Weight: 91 kg

DRUGS (3)
  1. DELTACORTENE [Concomitant]
     Active Substance: PREDNISONE
     Dosage: 10 MG
  2. PANTOPRAZOLE [Concomitant]
     Active Substance: PANTOPRAZOLE
     Dosage: 20 MG
  3. MYFENAX [Suspect]
     Active Substance: MYCOPHENOLATE MOFETIL
     Indication: MYASTHENIA GRAVIS
     Dosage: 2000 MG
     Route: 048
     Dates: start: 20190606, end: 20200215

REACTIONS (7)
  - Nasal congestion [Recovering/Resolving]
  - Urinary tract infection bacterial [Recovering/Resolving]
  - Insomnia [Recovering/Resolving]
  - Herpes zoster [Recovering/Resolving]
  - Muscular weakness [Recovering/Resolving]
  - Hypercholesterolaemia [Recovering/Resolving]
  - Depression [Recovering/Resolving]

NARRATIVE: CASE EVENT DATE: 20190923
